FAERS Safety Report 5150321-2 (Version None)
Quarter: 2006Q4

REPORT INFORMATION
  Report Type: 
  Country: None (occurrence: None)
  Receive Date: 20061114
  Receipt Date: 20061022
  Transmission Date: 20070319
  Serious: Yes (Death)
  Sender: FDA-Public Use
  Company Number: IL-NOVOPROD-258258

PATIENT
  Age: 7 Year
  Sex: Female

DRUGS (1)
  1. NOVOSEVEN [Suspect]
     Indication: HAEMORRHAGE
     Dosage: 1.2 UNK, QD
     Dates: start: 20061012, end: 20061012

REACTIONS (1)
  - DISSEMINATED INTRAVASCULAR COAGULATION [None]
